FAERS Safety Report 20425099 (Version 1)
Quarter: 2022Q1

REPORT INFORMATION
  Report Type: Report from Study
  Country: US (occurrence: US)
  Receive Date: 20220204
  Receipt Date: 20220204
  Transmission Date: 20220423
  Serious: No
  Sender: FDA-Public Use
  Company Number: US-EXELIXIS-CABO-21036537

PATIENT
  Sex: Female
  Weight: 74.376 kg

DRUGS (25)
  1. CABOMETYX [Suspect]
     Active Substance: CABOZANTINIB S-MALATE
     Indication: Renal cell carcinoma
     Dosage: 40 MG, QD (2 TABLETS)
     Route: 048
     Dates: start: 20201112
  2. FAMOTIDINE [Concomitant]
     Active Substance: FAMOTIDINE
  3. FOLIC ACID [Concomitant]
     Active Substance: FOLIC ACID
  4. IMODIUM [Concomitant]
     Active Substance: LOPERAMIDE HYDROCHLORIDE
  5. MAGNESIUM [Concomitant]
     Active Substance: MAGNESIUM
  6. PYRIDOXINE [Concomitant]
     Active Substance: PYRIDOXINE
  7. SINGULAIR [Concomitant]
     Active Substance: MONTELUKAST SODIUM
  8. THERATEARS [Concomitant]
     Active Substance: CARBOXYMETHYLCELLULOSE SODIUM
  9. TUMS [Concomitant]
     Active Substance: CALCIUM CARBONATE
  10. TYLENOL [Concomitant]
     Active Substance: ACETAMINOPHEN
  11. VITAMIN B12 [Concomitant]
     Active Substance: CYANOCOBALAMIN
  12. VITAMIN D3 [Concomitant]
     Active Substance: CHOLECALCIFEROL
  13. CLONAZEPAM [Concomitant]
     Active Substance: CLONAZEPAM
  14. HYDROCORTISONE [Concomitant]
     Active Substance: HYDROCORTISONE
  15. MONTELUKAST SODIUM [Concomitant]
     Active Substance: MONTELUKAST SODIUM
  16. SIMVASTATIN [Concomitant]
     Active Substance: SIMVASTATIN
  17. SYNTHROID [Concomitant]
     Active Substance: LEVOTHYROXINE SODIUM
  18. DESMOPRESSIN ACETATE [Concomitant]
     Active Substance: DESMOPRESSIN ACETATE
  19. ONDANSETRON [Concomitant]
     Active Substance: ONDANSETRON
  20. INLYTA [Concomitant]
     Active Substance: AXITINIB
  21. AFLURIA NOS [Concomitant]
     Active Substance: INFLUENZA VIRUS VACCINE TRIVALENT TYPE A+B AFLURIA
  22. BIOTENE NOS [Concomitant]
     Active Substance: CETYLPYRIDINIUM CHLORIDE OR SODIUM FLUORIDE OR SODIUM MONOFLUOROPHOSPHATE OR GLUCOSE OXIDASE\LACTOFE
  23. AMMONIUM LACTATE [Concomitant]
     Active Substance: AMMONIUM LACTATE
  24. BIOTIN [Concomitant]
     Active Substance: BIOTIN
  25. FLUCONAZOLE [Concomitant]
     Active Substance: FLUCONAZOLE

REACTIONS (21)
  - Neuropathy peripheral [Unknown]
  - Contusion [Unknown]
  - Salivary hypersecretion [Unknown]
  - Abdominal discomfort [Unknown]
  - Blood chloride decreased [Unknown]
  - Gastrooesophageal reflux disease [Unknown]
  - Alopecia [Unknown]
  - Hepatic enzyme increased [Unknown]
  - Fatigue [Unknown]
  - Palmar-plantar erythrodysaesthesia syndrome [Unknown]
  - Blood pressure increased [Unknown]
  - Blood sodium decreased [Unknown]
  - Blood potassium decreased [Unknown]
  - Nausea [Unknown]
  - Constipation [Unknown]
  - Dysphonia [Unknown]
  - Headache [Unknown]
  - Arthralgia [Unknown]
  - Muscle spasms [Unknown]
  - Stomatitis [Unknown]
  - Malignant neoplasm progression [Unknown]
